FAERS Safety Report 9848032 (Version 1)
Quarter: 2014Q1

REPORT INFORMATION
  Report Type: Spontaneous
  Country: US (occurrence: None)
  Receive Date: 20140123
  Receipt Date: 20140123
  Transmission Date: 20141002
  Serious: Yes (Other)
  Sender: FDA-Public Use
  Company Number: None

PATIENT
  Age: 56 Year
  Sex: Female
  Weight: 85 kg

DRUGS (2)
  1. VANCOMYCIN [Suspect]
     Dates: start: 20130717, end: 20130718
  2. PIPERACILLIN/TAZOBACTAM [Suspect]
     Dates: start: 20130705, end: 20130717

REACTIONS (2)
  - Eosinophilia [None]
  - Drug hypersensitivity [None]
